FAERS Safety Report 7561868-3 (Version None)
Quarter: 2011Q2

REPORT INFORMATION
  Report Type: 
  Country: None (occurrence: None)
  Receive Date: 20110621
  Receipt Date: 20110608
  Transmission Date: 20111010
  Serious: Yes (Hospitalization)
  Sender: FDA-Public Use
  Company Number: PHHY2011FR06679

PATIENT
  Sex: Male

DRUGS (13)
  1. VALACYCLOVIR [Suspect]
     Dosage: UNK UKN, UNK
  2. PERINDOPRIL ERBUMINE [Concomitant]
     Dosage: UNK UKN, UNK
  3. CERTICAN [Suspect]
     Indication: HEART TRANSPLANT
     Dosage: 3 MG
     Dates: start: 20100415, end: 20101210
  4. SIMVASTATIN [Concomitant]
     Dosage: UNK UKN, UNK
  5. CACIT D3 [Concomitant]
     Dosage: UNK UKN, UNK
  6. ESOMEPRAZOLE MAGNESIUM [Concomitant]
     Dosage: UNK UKN, UNK
  7. ACETAMINOPHEN [Concomitant]
     Dosage: UNK UKN, UNK
  8. VALACYCLOVIR [Suspect]
     Dosage: 450 MG THREE TIMES A WEEK
  9. BACTRIM [Concomitant]
     Dosage: UNK UKN, UNK
  10. PREDNISONE [Concomitant]
     Dosage: UNK UKN, UNK
  11. VALACYCLOVIR [Suspect]
     Dosage: 900 MG
     Dates: start: 20100708
  12. LANTUS [Concomitant]
     Dosage: UNK UKN, UNK
  13. KAYEXALATE [Concomitant]
     Dosage: UNK UKN, UNK

REACTIONS (7)
  - THROMBOCYTOPENIA [None]
  - LEUKOPENIA [None]
  - NEUTROPENIA [None]
  - HYPERSPLENISM [None]
  - BONE MARROW FAILURE [None]
  - ANAEMIA [None]
  - CYTOMEGALOVIRUS COLITIS [None]
